FAERS Safety Report 25361882 (Version 2)
Quarter: 2025Q2

REPORT INFORMATION
  Report Type: Spontaneous
  Country: JP (occurrence: JP)
  Receive Date: 20250527
  Receipt Date: 20250609
  Transmission Date: 20250716
  Serious: Yes (Death, Life-Threatening, Hospitalization, Other)
  Sender: Norvium Bioscience
  Company Number: JP-Norvium Bioscience LLC-080193

PATIENT
  Age: 1 Month
  Sex: Female
  Weight: 2.22 kg

DRUGS (3)
  1. AZITHROMYCIN [Suspect]
     Active Substance: AZITHROMYCIN
     Indication: Bordetella infection
  2. MEROPENEM [Suspect]
     Active Substance: MEROPENEM
     Indication: Bordetella infection
  3. VANCOMYCIN [Suspect]
     Active Substance: VANCOMYCIN
     Indication: Bordetella infection

REACTIONS (5)
  - Condition aggravated [Fatal]
  - Pertussis [Fatal]
  - Drug resistance [Fatal]
  - Pulmonary hypertension [Fatal]
  - Circulatory collapse [Fatal]
